FAERS Safety Report 5470653-8 (Version None)
Quarter: 2007Q3

REPORT INFORMATION
  Report Type: 
  Country: None (occurrence: None)
  Receive Date: 20070925
  Receipt Date: 20070914
  Transmission Date: 20080115
  Serious: Yes (Disabling)
  Sender: FDA-Public Use
  Company Number: GXKR2007DK08022

PATIENT
  Age: 62 Year
  Sex: Female
  Weight: 65 kg

DRUGS (5)
  1. DICILLIN (NGX) (DICLOXACILLIN) HARD-GELATIN CAPSULE, 500MG [Suspect]
     Indication: OSTEOMYELITIS
     Dosage: 3000 MG, ORAL
     Route: 048
     Dates: start: 20070501
  2. SINEMET MITE (CARBIDOPA, LEVODOPA) [Concomitant]
  3. RASAGILINE (RASAGILINE) [Concomitant]
  4. SIFROL (PRAMIPEXOLE DIHYDROCHLORIDE) [Concomitant]
  5. GLUCOSAMINE (GLUCOSAMINE) [Concomitant]

REACTIONS (2)
  - OSTEOARTHRITIS [None]
  - PARKINSONISM [None]
